FAERS Safety Report 24692961 (Version 1)
Quarter: 2024Q4

REPORT INFORMATION
  Report Type: Report from Study
  Country: CO (occurrence: CO)
  Receive Date: 20241203
  Receipt Date: 20241203
  Transmission Date: 20250115
  Serious: Yes (Other)
  Sender: AZURITY PHARMACEUTICALS
  Company Number: CO-AZURITY PHARMACEUTICALS, INC.-AZR202411-001241

PATIENT
  Age: 67 Year
  Sex: Male

DRUGS (1)
  1. TRIPTORELIN [Suspect]
     Active Substance: TRIPTORELIN
     Indication: Prostate cancer
     Dosage: 22.5 MILLIGRAM(S), IN 6 MONTH
     Route: 030
     Dates: start: 20200302

REACTIONS (3)
  - Prostatic specific antigen increased [Not Recovered/Not Resolved]
  - Influenza like illness [Unknown]
  - Therapy cessation [Unknown]

NARRATIVE: CASE EVENT DATE: 20210815
